FAERS Safety Report 9327297 (Version 2)
Quarter: 2013Q3

REPORT INFORMATION
  Report Type: Spontaneous
  Country: JP (occurrence: JP)
  Receive Date: 20130604
  Receipt Date: 20130701
  Transmission Date: 20140515
  Serious: Yes (Hospitalization)
  Sender: FDA-Public Use
  Company Number: JP-BAYER-2013-066099

PATIENT
  Sex: Female

DRUGS (2)
  1. BAYASPIRIN [Suspect]
     Indication: ANGINA PECTORIS
     Dosage: 100 MG, QD
     Route: 048
     Dates: start: 201212
  2. BAYASPIRIN [Suspect]
     Indication: CORONARY ARTERIAL STENT INSERTION

REACTIONS (1)
  - Pneumonia [None]
